FAERS Safety Report 5753837-0 (Version None)
Quarter: 2008Q2

REPORT INFORMATION
  Report Type: 
  Country: None (occurrence: None)
  Receive Date: 20080527
  Receipt Date: 20080527
  Transmission Date: 20081010
  Serious: No
  Sender: FDA-Public Use
  Company Number: None

PATIENT
  Sex: Female
  Weight: 56.246 kg

DRUGS (1)
  1. IBUPROFEN [Suspect]
     Indication: INFLAMMATION
     Dosage: 1 TABLET    3 X A DAY
     Dates: start: 20080101, end: 20080311

REACTIONS (1)
  - BLISTER [None]
